FAERS Safety Report 13397861 (Version 1)
Quarter: 2017Q2

REPORT INFORMATION
  Report Type: Spontaneous
  Country: US (occurrence: US)
  Receive Date: 20170403
  Receipt Date: 20170403
  Transmission Date: 20170830
  Serious: Yes (Hospitalization)
  Sender: FDA-Public Use
  Company Number: US-INFIRST HEALTHCARE INC.-1064937

PATIENT
  Age: 1 Month
  Sex: Female

DRUGS (1)
  1. MYLICON INFANTS GAS RELIEF DYE FREE [Suspect]
     Active Substance: DIMETHICONE
     Indication: FLATULENCE
     Route: 048
     Dates: start: 20170217, end: 20170220

REACTIONS (1)
  - Tremor [Recovered/Resolved]

NARRATIVE: CASE EVENT DATE: 20170220
